FAERS Safety Report 7301798-5 (Version None)
Quarter: 2011Q1

REPORT INFORMATION
  Report Type: 
  Country: None (occurrence: None)
  Receive Date: 20110218
  Receipt Date: 20110211
  Transmission Date: 20110831
  Serious: Yes (Hospitalization)
  Sender: FDA-Public Use
  Company Number: B0699339A

PATIENT
  Sex: Female
  Weight: 36 kg

DRUGS (2)
  1. DEXAMETHASONE [Concomitant]
     Dosage: 20MG PER DAY
     Dates: start: 20101201, end: 20101229
  2. ALKERAN [Suspect]
     Indication: AMYLOIDOSIS
     Dosage: 2MG CYCLIC
     Route: 048
     Dates: start: 20101201, end: 20101229

REACTIONS (3)
  - PANCYTOPENIA [None]
  - THROMBOCYTOPENIA [None]
  - HAEMORRHAGE [None]
